FAERS Safety Report 9201450 (Version 1)
Quarter: 2013Q2

REPORT INFORMATION
  Report Type: Spontaneous
  Country: US (occurrence: US)
  Receive Date: 20130401
  Receipt Date: 20130401
  Transmission Date: 20140414
  Serious: Yes (Other)
  Sender: FDA-Public Use
  Company Number: US-SANOFI-AVENTIS-2013SA003373

PATIENT
  Age: 43 Year
  Sex: Female

DRUGS (2)
  1. AUBAGIO [Suspect]
     Indication: MULTIPLE SCLEROSIS
     Route: 048
     Dates: start: 201210, end: 201301
  2. WELLBUTRIN [Concomitant]

REACTIONS (12)
  - Drug hypersensitivity [Unknown]
  - Pneumonia [Unknown]
  - Dyspnoea [Not Recovered/Not Resolved]
  - Loss of consciousness [Unknown]
  - Bronchitis [Unknown]
  - Cough [Unknown]
  - Fractured coccyx [Unknown]
  - Dizziness [Unknown]
  - Palpitations [Recovered/Resolved]
  - Fall [Unknown]
  - Gait disturbance [Unknown]
  - Drug dose omission [Unknown]
